FAERS Safety Report 9467333 (Version 11)
Quarter: 2014Q2

REPORT INFORMATION
  Report Type: Spontaneous
  Country: US (occurrence: US)
  Receive Date: 20130821
  Receipt Date: 20140507
  Transmission Date: 20141212
  Serious: No
  Sender: FDA-Public Use
  Company Number: US-009507513-1308USA007143

PATIENT
  Age: 58 Year
  Sex: Male
  Weight: 126.98 kg

DRUGS (3)
  1. VICTRELIS [Suspect]
     Indication: CHRONIC HEPATITIS C
     Dosage: UNK
  2. REBETOL [Suspect]
     Indication: CHRONIC HEPATITIS C
     Dosage: 1200 MG DAILY IN DIVIDED DOSES
     Route: 048
     Dates: start: 20130708
  3. PEGASYS [Suspect]
     Indication: CHRONIC HEPATITIS C
     Dosage: 180 MICROGRAM, QW
     Route: 058
     Dates: start: 20130708

REACTIONS (23)
  - Confusional state [Unknown]
  - Anxiety [Unknown]
  - Depression [Unknown]
  - Weight decreased [Unknown]
  - Apathy [Unknown]
  - Skin irritation [Recovered/Resolved]
  - Thyroid disorder [Unknown]
  - Feeling of despair [Unknown]
  - Tongue ulceration [Unknown]
  - Decreased appetite [Not Recovered/Not Resolved]
  - Fatigue [Not Recovered/Not Resolved]
  - Rash [Unknown]
  - Rash [Recovered/Resolved]
  - Asthenia [Unknown]
  - Glossodynia [Unknown]
  - Rash [Unknown]
  - Dark circles under eyes [Unknown]
  - Vision blurred [Unknown]
  - Aphthous stomatitis [Unknown]
  - Drug hypersensitivity [Unknown]
  - Rash pruritic [Unknown]
  - Skin discolouration [Not Recovered/Not Resolved]
  - Arthropod bite [Unknown]
